FAERS Safety Report 19237483 (Version 1)
Quarter: 2021Q2

REPORT INFORMATION
  Report Type: Spontaneous
  Country: US (occurrence: US)
  Receive Date: 20210510
  Receipt Date: 20210510
  Transmission Date: 20210717
  Serious: Yes (Other)
  Sender: FDA-Public Use
  Company Number: None

PATIENT
  Age: 41 Year
  Sex: Female

DRUGS (1)
  1. DALFAMPRIDINE ER TAB 10MG [Suspect]
     Active Substance: DALFAMPRIDINE
     Route: 048
     Dates: start: 202104, end: 202105

REACTIONS (5)
  - Mobility decreased [None]
  - Product substitution issue [None]
  - Balance disorder [None]
  - Gait disturbance [None]
  - Muscle rigidity [None]

NARRATIVE: CASE EVENT DATE: 20210401
